FAERS Safety Report 9888172 (Version 3)
Quarter: 2014Q2

REPORT INFORMATION
  Report Type: Spontaneous
  Country: US (occurrence: US)
  Receive Date: 20140211
  Receipt Date: 20140502
  Transmission Date: 20141212
  Serious: Yes (Other)
  Sender: FDA-Public Use
  Company Number: US-JNJFOC-20140205063

PATIENT
  Sex: Female
  Weight: 57.3 kg

DRUGS (1)
  1. TOPIRAMATE [Suspect]
     Indication: TRANSIENT GLOBAL AMNESIA
     Route: 048

REACTIONS (2)
  - Drug ineffective for unapproved indication [Recovered/Resolved]
  - Off label use [Unknown]
